FAERS Safety Report 23534037 (Version 1)
Quarter: 2024Q1

REPORT INFORMATION
  Report Type: Report from Study
  Country: KR (occurrence: KR)
  Receive Date: 20240216
  Receipt Date: 20240216
  Transmission Date: 20240410
  Serious: Yes (Death)
  Sender: FDA-Public Use
  Company Number: KR-KOWA-24JP000183AA

PATIENT
  Age: 79 Year
  Sex: Male
  Weight: 78 kg

DRUGS (7)
  1. EZETIMIBE\PITAVASTATIN CALCIUM [Suspect]
     Active Substance: EZETIMIBE\PITAVASTATIN CALCIUM
     Indication: Hypercholesterolaemia
     Dosage: 1 DF, QD
     Route: 048
     Dates: start: 20230808, end: 20230831
  2. BUKWANG ISOMACK RETARD [Concomitant]
     Indication: Angina pectoris
     Dosage: 20 MG, BID
     Route: 048
     Dates: start: 20111101
  3. STILLEN [Concomitant]
     Indication: Prophylaxis
     Dosage: 1 DF, BID
     Route: 048
     Dates: start: 20111101
  4. VASTINAN MR [Concomitant]
     Indication: Angina pectoris
     Dosage: 35 MG, BID
     Route: 048
     Dates: start: 20111101
  5. RAMIPRIL [Concomitant]
     Active Substance: RAMIPRIL
     Indication: Hypertension
     Dosage: 2.5 MG, QD
     Route: 048
     Dates: start: 20120131
  6. NEXIUM I.V. [Concomitant]
     Active Substance: ESOMEPRAZOLE SODIUM
     Indication: Prophylaxis
     Dosage: 20 MG, QD
     Route: 048
     Dates: start: 20220504
  7. FEROBA YOU SR [Concomitant]
     Indication: Prophylaxis
     Dosage: 1 DF, BID
     Route: 048
     Dates: start: 20220504

REACTIONS (1)
  - Death [Fatal]

NARRATIVE: CASE EVENT DATE: 20230831
